FAERS Safety Report 7932934-5 (Version None)
Quarter: 2011Q4

REPORT INFORMATION
  Report Type: 
  Country: None (occurrence: None)
  Receive Date: 20111122
  Receipt Date: 20111121
  Transmission Date: 20120403
  Serious: No
  Sender: FDA-Public Use
  Company Number: US-PFIZER INC-2011284599

PATIENT
  Sex: Female
  Weight: 104 kg

DRUGS (5)
  1. ARTHROTEC [Concomitant]
     Indication: ARTHRITIS
     Dosage: 75 MG, 2X/DAY
  2. CHANTIX [Suspect]
     Indication: SMOKING CESSATION THERAPY
     Dosage: 0.5 MG, DAILY
     Dates: start: 20110101, end: 20110101
  3. COMPAZINE [Suspect]
     Indication: NAUSEA
     Dosage: UNK
  4. CHANTIX [Suspect]
     Dosage: 1 MG, 2X/DAY
     Dates: start: 20110101
  5. VICODIN [Concomitant]
     Indication: ARTHRITIS
     Dosage: HYDROCODONE BITARTRATE 10 MG / PARACETAMOL 325 MG, AS NEEDED

REACTIONS (3)
  - FEELING HOT [None]
  - DRUG INEFFECTIVE [None]
  - TONGUE DISORDER [None]
